FAERS Safety Report 23014318 (Version 3)
Quarter: 2023Q4

REPORT INFORMATION
  Report Type: Spontaneous
  Country: US (occurrence: None)
  Receive Date: 20231002
  Receipt Date: 20231116
  Transmission Date: 20240110
  Serious: No
  Sender: FDA-Public Use
  Company Number: 2023A218281

PATIENT
  Age: 23102 Day
  Sex: Male

DRUGS (1)
  1. BUDESONIDE\FORMOTEROL [Suspect]
     Active Substance: BUDESONIDE\FORMOTEROL
     Indication: Cough
     Dosage: 160 UG, EVERY 12 HOURS
     Route: 055
     Dates: start: 202308

REACTIONS (8)
  - Retching [Unknown]
  - Cough [Unknown]
  - Product use in unapproved indication [Unknown]
  - Device use issue [Recovered/Resolved]
  - Drug dose omission by device [Not Recovered/Not Resolved]
  - Wrong technique in device usage process [Unknown]
  - Device defective [Unknown]
  - Product taste abnormal [Unknown]

NARRATIVE: CASE EVENT DATE: 20230801
